FAERS Safety Report 25166957 (Version 1)
Quarter: 2025Q2

REPORT INFORMATION
  Report Type: Report from Study
  Country: ZA (occurrence: ZA)
  Receive Date: 20250407
  Receipt Date: 20250407
  Transmission Date: 20250717
  Serious: Yes (Death)
  Sender: ALEXION PHARMACEUTICALS
  Company Number: ZA-AstraZeneca-CH-00841441A

PATIENT
  Age: 78 Year

DRUGS (8)
  1. DAPAGLIFLOZIN [Suspect]
     Active Substance: DAPAGLIFLOZIN
     Indication: Diabetes mellitus
  2. Omiflux [Concomitant]
     Indication: Gastrooesophageal reflux disease
  3. Omiflux [Concomitant]
     Indication: Ulcer
  4. Omiflux [Concomitant]
     Indication: Gastrooesophageal reflux disease
  5. Omiflux [Concomitant]
     Indication: Helicobacter gastritis
  6. Omiflux [Concomitant]
     Indication: Gastrinoma
  7. METFORMIN HYDROCHLORIDE [Concomitant]
     Active Substance: METFORMIN HYDROCHLORIDE
     Indication: Diabetes mellitus
  8. ACETYLCYSTEINE [Concomitant]
     Active Substance: ACETYLCYSTEINE

REACTIONS (1)
  - Death [Fatal]
